FAERS Safety Report 4666239-5 (Version None)
Quarter: 2005Q2

REPORT INFORMATION
  Report Type: 
  Country: None (occurrence: None)
  Receive Date: 20050518
  Receipt Date: 20050509
  Transmission Date: 20051028
  Serious: Yes (Other)
  Sender: FDA-Public Use
  Company Number: 2005-04-1534

PATIENT
  Sex: Male

DRUGS (1)
  1. INTERFERON ALFA INJECTABLE [Suspect]
     Indication: NON-HODGKIN'S LYMPHOMA
     Dosage: 3 MIU TIW SUBCUTANEOUS
     Route: 058

REACTIONS (1)
  - NO ADVERSE EFFECT [None]
